FAERS Safety Report 4600587-X (Version None)
Quarter: 2005Q1

REPORT INFORMATION
  Report Type: 
  Country: None (occurrence: None)
  Receive Date: 20050304
  Receipt Date: 20050222
  Transmission Date: 20050727
  Serious: Yes (Life-Threatening, Hospitalization)
  Sender: FDA-Public Use
  Company Number: HQWYE505023FEB05

PATIENT
  Age: 78 Year
  Sex: Male

DRUGS (4)
  1. INDERAL [Suspect]
     Indication: ARRHYTHMIA
     Dosage: SEE IMAGE, ORAL
     Route: 048
     Dates: start: 20021101, end: 20040101
  2. FLECAINIDE ACETATE [Concomitant]
  3. SIMVASTATIN [Concomitant]
  4. ASPIRIN [Concomitant]

REACTIONS (5)
  - ELECTROCARDIOGRAM QRS COMPLEX PROLONGED [None]
  - ELECTROCARDIOGRAM QT PROLONGED [None]
  - RENAL FAILURE CHRONIC [None]
  - SICK SINUS SYNDROME [None]
  - URINARY TRACT OBSTRUCTION [None]
